FAERS Safety Report 16692216 (Version 1)
Quarter: 2019Q3

REPORT INFORMATION
  Report Type: Spontaneous
  Country: US (occurrence: US)
  Receive Date: 20190812
  Receipt Date: 20190812
  Transmission Date: 20191004
  Serious: Yes (Hospitalization, Other)
  Sender: FDA-Public Use
  Company Number: PHHY2019US182005

PATIENT
  Age: 74 Year
  Sex: Male

DRUGS (9)
  1. KETAMINE [Concomitant]
     Active Substance: KETAMINE
     Indication: DEPRESSION
     Dosage: UNK, EVERY 6 WEEKS
     Route: 041
     Dates: start: 201604
  2. DULOXETINE. [Concomitant]
     Active Substance: DULOXETINE
     Indication: PRODUCT USED FOR UNKNOWN INDICATION
     Route: 065
  3. AMPHETAMINE [Concomitant]
     Active Substance: AMPHETAMINE
     Indication: PRODUCT USED FOR UNKNOWN INDICATION
     Route: 065
  4. ATOVAQUONE. [Concomitant]
     Active Substance: ATOVAQUONE
     Indication: LYME DISEASE
     Dosage: UNK
     Route: 065
     Dates: start: 201711
  5. DISULFIRAM. [Interacting]
     Active Substance: DISULFIRAM
     Indication: LYME DISEASE
     Dosage: 500 MG, QD
     Route: 048
     Dates: start: 201801
  6. TINIDAZOLE. [Concomitant]
     Active Substance: TINIDAZOLE
     Indication: LYME DISEASE
     Dosage: UNK
     Route: 065
     Dates: start: 201711
  7. IMIPRAMINE [Suspect]
     Active Substance: IMIPRAMINE
     Indication: BLADDER SPASM
     Dosage: UNK
     Route: 065
  8. ARIPIPRAZOLE. [Concomitant]
     Active Substance: ARIPIPRAZOLE
     Indication: PRODUCT USED FOR UNKNOWN INDICATION
     Route: 065
  9. CEFTRIAXONE. [Concomitant]
     Active Substance: CEFTRIAXONE
     Indication: LYME DISEASE
     Dosage: UNK
     Route: 065
     Dates: start: 201712

REACTIONS (5)
  - Drug interaction [Unknown]
  - Drug level increased [Unknown]
  - Syncope [Recovered/Resolved]
  - Concussion [Unknown]
  - Product use in unapproved indication [Unknown]
